FAERS Safety Report 16222027 (Version 21)
Quarter: 2021Q3

REPORT INFORMATION
  Report Type: Report from Study
  Country: GB (occurrence: GB)
  Receive Date: 20190422
  Receipt Date: 20210923
  Transmission Date: 20211014
  Serious: Yes (Death, Other)
  Sender: FDA-Public Use
  Company Number: GB-ACCORD-123715

PATIENT
  Age: 61 Year
  Sex: Female

DRUGS (26)
  1. TRASTUZUMAB/EMTANSINE [Suspect]
     Active Substance: ADO-TRASTUZUMAB EMTANSINE
     Indication: HER2 POSITIVE BREAST CANCER
     Dosage: ALSO RECEIVED 172 MG FROM 01?DEC?2015 TO 21?DEC?2015
     Route: 042
     Dates: start: 20160215, end: 20160215
  2. FILGRASTIM/GRANULOCYTE COLONY STIMULATING/LENOGRASTIM [Concomitant]
     Active Substance: GRANULOCYTE COLONY-STIMULATING FACTOR NOS
     Dosage: 300 UG, QD (DOSE FORM: 120) ALSO RECEIVED 300 MCG FROM 25?JUL?2015 TO 30?JUL?2015
     Dates: start: 20150725, end: 20150730
  3. LOPERAMIDE [Concomitant]
     Active Substance: LOPERAMIDE
     Indication: DIARRHOEA
     Route: 048
     Dates: start: 20170901, end: 20171124
  4. AMLODIPINE [Concomitant]
     Active Substance: AMLODIPINE BESYLATE
     Route: 048
  5. AMOXICILLIN. [Concomitant]
     Active Substance: AMOXICILLIN
     Indication: LOWER RESPIRATORY TRACT INFECTION
     Dosage: 625 MG, QD
     Route: 048
     Dates: start: 20170222, end: 20170228
  6. CLAVULANIC ACID [Concomitant]
     Active Substance: CLAVULANIC ACID
     Indication: LOWER RESPIRATORY TRACT INFECTION
     Dosage: 625 MG, QD (FORMULATION: 245)
     Route: 048
     Dates: start: 20170222, end: 20170228
  7. NERATINIB [Suspect]
     Active Substance: NERATINIB
     Indication: HER2 POSITIVE BREAST CANCER
     Route: 048
     Dates: start: 20170901, end: 20180314
  8. PIPERACILLIN/TAZOBACTAM [Concomitant]
     Active Substance: PIPERACILLIN SODIUM\TAZOBACTAM SODIUM
     Indication: LOWER RESPIRATORY TRACT INFECTION
     Route: 042
     Dates: start: 20170213, end: 20170215
  9. GENTAMICIN. [Concomitant]
     Active Substance: GENTAMICIN
     Indication: LOWER RESPIRATORY TRACT INFECTION
     Route: 042
     Dates: start: 20170213, end: 201702
  10. FOLIC ACID. [Concomitant]
     Active Substance: FOLIC ACID
     Indication: BLOOD FOLATE DECREASED
     Route: 048
     Dates: start: 20150828, end: 201708
  11. DOCETAXEL. [Suspect]
     Active Substance: DOCETAXEL
     Indication: HER2 POSITIVE BREAST CANCER
     Dosage: DOSE MODIFIED
     Route: 042
     Dates: start: 20150602, end: 20150602
  12. VINORELBINE [Suspect]
     Active Substance: VINORELBINE TARTRATE
     Indication: HER2 POSITIVE BREAST CANCER
     Route: 048
     Dates: start: 20180608, end: 20180810
  13. GRANULOCYTE COLONY STIMULATING [Concomitant]
     Active Substance: GRANULOCYTE COLONY-STIMULATING FACTOR NOS
     Dosage: EVERY DAY FOR 3 DAYS STARTING ON DAYS 3 AND 11
     Route: 058
     Dates: start: 20160421, end: 20160721
  14. MUPIROCIN/MUPIROCIN CALCIUM [Concomitant]
     Active Substance: MUPIROCIN\MUPIROCIN CALCIUM
     Indication: PROPHYLAXIS
     Route: 061
     Dates: start: 20160620, end: 20160624
  15. CAPECITABINE. [Suspect]
     Active Substance: CAPECITABINE
     Indication: HER2 POSITIVE BREAST CANCER
     Route: 048
     Dates: start: 20170210, end: 20170728
  16. ERIBULIN [Suspect]
     Active Substance: ERIBULIN
     Indication: HER2 POSITIVE BREAST CANCER
     Route: 042
     Dates: start: 20160411, end: 20160624
  17. PIPERACILLIN SODIUM/TAZOBACTAM SODIUM [Concomitant]
     Active Substance: PIPERACILLIN SODIUM\TAZOBACTAM SODIUM
     Indication: LOWER RESPIRATORY TRACT INFECTION
     Route: 042
     Dates: start: 20170213, end: 20170215
  18. AMOXICILLIN/CLAVULANATE POTASSIUM [Concomitant]
     Active Substance: AMOXICILLIN\CLAVULANATE POTASSIUM
     Indication: LOWER RESPIRATORY TRACT INFECTION
     Route: 048
     Dates: start: 20170222, end: 20170228
  19. PERTUZUMAB. [Suspect]
     Active Substance: PERTUZUMAB
     Indication: HER2 POSITIVE BREAST CANCER
     Dosage: TARGETED THERAPY; ALSO RECEIVED 840 MG
     Route: 042
     Dates: start: 20150622, end: 20151102
  20. TRASTUZUMAB. [Suspect]
     Active Substance: TRASTUZUMAB
     Indication: HER2 POSITIVE BREAST CANCER
     Dosage: ALSO RECEIVED 350 MG ON 01?JUN?2015
     Route: 042
     Dates: start: 20150629, end: 20151102
  21. MEROPENEM. [Concomitant]
     Active Substance: MEROPENEM
     Indication: LOWER RESPIRATORY TRACT INFECTION
     Route: 042
     Dates: start: 20170215, end: 20170221
  22. SANDO K [Concomitant]
     Indication: NUTRITIONAL SUPPLEMENTATION
     Dosage: 2 TABLETS EVERY DAY
     Route: 048
     Dates: start: 20150828, end: 20150830
  23. DOMPERIDONE [Concomitant]
     Active Substance: DOMPERIDONE
     Route: 048
     Dates: start: 20160406, end: 20160421
  24. CIPROFLOXACIN. [Concomitant]
     Active Substance: CIPROFLOXACIN
     Route: 048
     Dates: start: 20151218, end: 20151225
  25. RED BLOOD CELLS [Concomitant]
     Active Substance: HUMAN RED BLOOD CELL
     Dosage: 2 U, QD
     Route: 042
     Dates: start: 20160702, end: 20160702
  26. POTASSIUM [Concomitant]
     Active Substance: POTASSIUM
     Indication: NUTRITIONAL SUPPLEMENTATION
     Dosage: 2 TABLETS EVERY DAY
     Route: 048
     Dates: start: 20150828, end: 20150830

REACTIONS (29)
  - Palpitations [Fatal]
  - Pancytopenia [Fatal]
  - Mucosal inflammation [Fatal]
  - Pyrexia [Fatal]
  - Alopecia [Not Recovered/Not Resolved]
  - Hyperchlorhydria [Fatal]
  - Nausea [Fatal]
  - Decreased appetite [Fatal]
  - Intentional product misuse [Fatal]
  - Condition aggravated [Not Recovered/Not Resolved]
  - Neuropathy peripheral [Fatal]
  - Rash pruritic [Fatal]
  - Thrombocytopenia [Fatal]
  - Fatigue [Fatal]
  - Cough [Fatal]
  - Odynophagia [Fatal]
  - Tremor [Fatal]
  - Folate deficiency [Fatal]
  - Disease progression [Fatal]
  - Colitis [Fatal]
  - Dysphonia [Fatal]
  - Hypoaesthesia [Fatal]
  - Neutropenia [Fatal]
  - Dyspepsia [Fatal]
  - Lethargy [Fatal]
  - Product use issue [Unknown]
  - Diarrhoea [Fatal]
  - Weight decreased [Fatal]
  - Throat irritation [Fatal]

NARRATIVE: CASE EVENT DATE: 20150717
